FAERS Safety Report 18125070 (Version 4)
Quarter: 2020Q4

REPORT INFORMATION
  Report Type: Spontaneous
  Country: US (occurrence: US)
  Receive Date: 20200807
  Receipt Date: 20201126
  Transmission Date: 20210113
  Serious: Yes (Hospitalization, Other)
  Sender: FDA-Public Use
  Company Number: US-SA-2020SA201977

PATIENT

DRUGS (1)
  1. CAPRELSA [Suspect]
     Active Substance: VANDETANIB
     Indication: THYROID CANCER
     Dosage: 100 MG, QD (IN THE MORNING BEFORE EATING)
     Route: 048
     Dates: start: 20191210

REACTIONS (12)
  - Haemorrhoids [Unknown]
  - Lip discolouration [Unknown]
  - Malignant neoplasm progression [Unknown]
  - Head injury [Unknown]
  - Staphylococcal infection [Unknown]
  - Pulmonary congestion [Unknown]
  - Metastases to lymph nodes [Unknown]
  - Constipation [Unknown]
  - Fall [Unknown]
  - Loss of consciousness [Unknown]
  - Insomnia [Unknown]
  - Rhinorrhoea [Unknown]
